FAERS Safety Report 18588697 (Version 1)
Quarter: 2020Q4

REPORT INFORMATION
  Report Type: Spontaneous
  Country: AR (occurrence: AR)
  Receive Date: 20201207
  Receipt Date: 20201207
  Transmission Date: 20210114
  Serious: Yes (Disabling, Other)
  Sender: FDA-Public Use
  Company Number: AR-AMGEN-ARGSP2020198812

PATIENT
  Age: 50 Year
  Sex: Female

DRUGS (2)
  1. ENBREL [Suspect]
     Active Substance: ETANERCEPT
     Indication: PSORIATIC ARTHROPATHY
     Dosage: 50 MILLIGRAM, QWK
     Route: 065
     Dates: start: 20050108
  2. ENBREL [Suspect]
     Active Substance: ETANERCEPT
     Dosage: 50 MG (EVERY 15 DAYS)
     Route: 065

REACTIONS (6)
  - Intentional product misuse [Unknown]
  - Pain in extremity [Unknown]
  - Gait disturbance [Unknown]
  - Disease progression [Unknown]
  - Loss of personal independence in daily activities [Unknown]
  - Product dose omission issue [Unknown]

NARRATIVE: CASE EVENT DATE: 2019
